FAERS Safety Report 10911506 (Version 2)
Quarter: 2015Q2

REPORT INFORMATION
  Report Type: Report from Study
  Country: CO (occurrence: CO)
  Receive Date: 20150313
  Receipt Date: 20150407
  Transmission Date: 20150821
  Serious: Yes (Other)
  Sender: FDA-Public Use
  Company Number: CO-ROCHE-1550527

PATIENT
  Sex: Female
  Weight: 63 kg

DRUGS (1)
  1. LUCENTIS [Suspect]
     Active Substance: RANIBIZUMAB
     Indication: EYE HAEMORRHAGE
     Route: 050

REACTIONS (4)
  - Cataract [Unknown]
  - Off label use [Unknown]
  - Dengue fever [Unknown]
  - Anaemia [Unknown]
